FAERS Safety Report 5415872-1 (Version None)
Quarter: 2007Q3

REPORT INFORMATION
  Report Type: 
  Country: None (occurrence: None)
  Receive Date: 20070815
  Receipt Date: 20070808
  Transmission Date: 20080115
  Serious: Yes (Other)
  Sender: FDA-Public Use
  Company Number: US-BOEHRINGER INGELHEIM PHARMACEUTICALS, INC.-2007-BP-18844BP

PATIENT
  Age: 51 Year
  Sex: Female

DRUGS (1)
  1. MIRAPEX [Suspect]
     Indication: RESTLESS LEGS SYNDROME
     Route: 048
     Dates: start: 20070708

REACTIONS (5)
  - ANOREXIA [None]
  - BREAST MASS [None]
  - HEPATIC STEATOSIS [None]
  - LYMPHADENOPATHY [None]
  - WEIGHT DECREASED [None]
